FAERS Safety Report 18619927 (Version 3)
Quarter: 2022Q2

REPORT INFORMATION
  Report Type: Spontaneous
  Country: US (occurrence: US)
  Receive Date: 20201215
  Receipt Date: 20220512
  Transmission Date: 20220721
  Serious: No
  Sender: FDA-Public Use
  Company Number: US-PFIZER INC-2020493035

PATIENT
  Age: 76 Year
  Sex: Female

DRUGS (1)
  1. XELJANZ XR [Suspect]
     Active Substance: TOFACITINIB CITRATE
     Dosage: 11 MG

REACTIONS (7)
  - Product dose omission issue [Unknown]
  - Dry skin [Unknown]
  - Skin exfoliation [Unknown]
  - Tooth disorder [Unknown]
  - Confusional state [Unknown]
  - Pain [Unknown]
  - Peripheral swelling [Unknown]
